FAERS Safety Report 9800011 (Version 1)
Quarter: 2014Q1

REPORT INFORMATION
  Report Type: Spontaneous
  Country: US (occurrence: US)
  Receive Date: 20140106
  Receipt Date: 20140106
  Transmission Date: 20141002
  Serious: No
  Sender: FDA-Public Use
  Company Number: US-GILEAD-2010-0030964

PATIENT
  Age: 35 Year
  Sex: Female
  Weight: 86.18 kg

DRUGS (5)
  1. LETAIRIS [Suspect]
     Indication: PULMONARY ARTERIAL HYPERTENSION
     Route: 048
     Dates: start: 20100609, end: 201007
  2. ADCIRCA [Concomitant]
     Indication: PULMONARY ARTERIAL HYPERTENSION
     Dates: start: 20100806
  3. FLOLAN [Concomitant]
  4. CLARINEX [Concomitant]
  5. MINOCYCLINE [Concomitant]

REACTIONS (1)
  - Tongue discolouration [Unknown]
